FAERS Safety Report 21718634 (Version 15)
Quarter: 2023Q4

REPORT INFORMATION
  Report Type: Other
  Country: CA (occurrence: None)
  Receive Date: 20221213
  Receipt Date: 20231214
  Transmission Date: 20240110
  Serious: Yes (Hospitalization, Other)
  Sender: FDA-Public Use
  Company Number: CA-ROCHE-3223849

PATIENT
  Age: 77 Year
  Sex: Male
  Weight: 83 kg

DRUGS (17)
  1. ACTEMRA [Suspect]
     Active Substance: TOCILIZUMAB
     Indication: Rheumatoid arthritis
     Dosage: DATE OF TREATMENTS: 27/JUL/2022, 26/AUG/2022, 26/SEP/2022, 24/OCT/2022
     Route: 042
     Dates: start: 20220413
  2. ACTEMRA [Suspect]
     Active Substance: TOCILIZUMAB
     Indication: Product used for unknown indication
     Route: 058
     Dates: start: 20220131, end: 20220328
  3. ASPIRIN [Concomitant]
     Active Substance: ASPIRIN
     Indication: Product used for unknown indication
  4. ALLOPURINOL [Concomitant]
     Active Substance: ALLOPURINOL
     Indication: Product used for unknown indication
  5. ATORVASTATIN [Concomitant]
     Active Substance: ATORVASTATIN
     Indication: Product used for unknown indication
  6. BISOPROLOL [Concomitant]
     Active Substance: BISOPROLOL\BISOPROLOL FUMARATE
     Indication: Product used for unknown indication
  7. GLICLAZIDE [Concomitant]
     Active Substance: GLICLAZIDE
     Indication: Product used for unknown indication
  8. METFORMIN [Concomitant]
     Active Substance: METFORMIN HYDROCHLORIDE
     Indication: Product used for unknown indication
  9. OXYCODONE [Concomitant]
     Active Substance: OXYCODONE
     Indication: Product used for unknown indication
  10. PANTOPRAZOLE [Concomitant]
     Active Substance: PANTOPRAZOLE
     Indication: Product used for unknown indication
  11. PLAQUENIL [Concomitant]
     Active Substance: HYDROXYCHLOROQUINE SULFATE
     Indication: Product used for unknown indication
  12. SYNTHROID [Concomitant]
     Active Substance: LEVOTHYROXINE SODIUM
  13. TYLENOL [Concomitant]
     Active Substance: ACETAMINOPHEN
     Indication: Product used for unknown indication
  14. PLAVIX [Concomitant]
     Active Substance: CLOPIDOGREL BISULFATE
  15. PREDNISONE [Concomitant]
     Active Substance: PREDNISONE
  16. METHOTREXATE [Concomitant]
     Active Substance: METHOTREXATE
  17. SULFASALAZINE [Concomitant]
     Active Substance: SULFASALAZINE

REACTIONS (21)
  - Transient ischaemic attack [Recovering/Resolving]
  - Pneumonia aspiration [Recovering/Resolving]
  - Headache [Unknown]
  - Pneumonia [Unknown]
  - Cerebrovascular accident [Unknown]
  - Myalgia [Not Recovered/Not Resolved]
  - Pain [Not Recovered/Not Resolved]
  - Pain of skin [Not Recovered/Not Resolved]
  - Asthenia [Unknown]
  - Fall [Unknown]
  - Prostatic disorder [Unknown]
  - Blood pressure systolic increased [Unknown]
  - Hypertension [Unknown]
  - Blood pressure systolic abnormal [Unknown]
  - COVID-19 [Recovered/Resolved]
  - Thyroid disorder [Unknown]
  - Blood pressure increased [Unknown]
  - Neuralgia [Unknown]
  - Heart rate decreased [Unknown]
  - Ill-defined disorder [Unknown]
  - Back pain [Unknown]

NARRATIVE: CASE EVENT DATE: 20220413
